FAERS Safety Report 20075987 (Version 1)
Quarter: 2021Q4

REPORT INFORMATION
  Report Type: Spontaneous
  Country: US (occurrence: US)
  Receive Date: 20211116
  Receipt Date: 20211116
  Transmission Date: 20220303
  Serious: No
  Sender: FDA-Public Use
  Company Number: US-NOVOPROD-775098

PATIENT
  Age: 80 Year
  Sex: Female

DRUGS (1)
  1. TRESIBA [Suspect]
     Active Substance: INSULIN DEGLUDEC
     Indication: Diabetes mellitus
     Dosage: 32 IU, QD (16 UNITS IN THE MORNING AND 16 UNITS AT NIGHT DAILY)
     Route: 065
     Dates: start: 20170313

REACTIONS (4)
  - Disorientation [Recovered/Resolved]
  - Memory impairment [Recovered/Resolved]
  - Device malfunction [Recovered/Resolved]
  - Product dose omission issue [Recovered/Resolved]

NARRATIVE: CASE EVENT DATE: 20201214
